FAERS Safety Report 16513083 (Version 1)
Quarter: 2019Q3

REPORT INFORMATION
  Report Type: Report from Study
  Country: IT (occurrence: IT)
  Receive Date: 20190701
  Receipt Date: 20190701
  Transmission Date: 20191004
  Serious: Yes (Hospitalization)
  Sender: FDA-Public Use
  Company Number: IT-MYLANLABS-2019M1060810

PATIENT
  Age: 86 Year
  Sex: Male
  Weight: 77 kg

DRUGS (11)
  1. SPIRONOLACTONE. [Suspect]
     Active Substance: SPIRONOLACTONE
     Indication: HYPOVOLAEMIA
     Dosage: 37 MG, UNK
     Route: 048
     Dates: start: 20180830, end: 20180910
  2. DAPRODUSTAT [Suspect]
     Active Substance: DAPRODUSTAT
     Indication: NEPHROGENIC ANAEMIA
     Dosage: UNK
     Dates: start: 20171123
  3. METOLAZONE. [Suspect]
     Active Substance: METOLAZONE
     Indication: CONGESTIVE CARDIOMYOPATHY
     Dosage: 5 MG, UNK
     Route: 048
     Dates: start: 20180830, end: 20180910
  4. METOLAZONE. [Suspect]
     Active Substance: METOLAZONE
     Indication: HYPOVOLAEMIA
     Dosage: 5 MILLIGRAM
     Route: 048
     Dates: start: 20181115
  5. SPIRONOLACTONE. [Suspect]
     Active Substance: SPIRONOLACTONE
     Indication: CONGESTIVE CARDIOMYOPATHY
     Dosage: 100 MILLIGRAM
     Route: 048
     Dates: start: 20181122
  6. FUROSEMIDE. [Suspect]
     Active Substance: FUROSEMIDE
     Dosage: 50 MG, UNK
     Route: 048
     Dates: end: 20181217
  7. SPIRONOLACTONE. [Suspect]
     Active Substance: SPIRONOLACTONE
     Dosage: 100 MILLIGRAM
     Route: 048
     Dates: end: 20181217
  8. FUROSEMIDE. [Suspect]
     Active Substance: FUROSEMIDE
     Indication: CONGESTIVE CARDIOMYOPATHY
     Dosage: 50 MG, UNK
     Route: 048
     Dates: start: 20180830, end: 20180910
  9. FUROSEMIDE. [Suspect]
     Active Substance: FUROSEMIDE
     Indication: HYPOVOLAEMIA
     Dosage: 125 MILLIGRAM
     Route: 048
     Dates: start: 20181122
  10. DARBEPOETIN ALFA [Suspect]
     Active Substance: DARBEPOETIN ALFA
     Indication: NEPHROGENIC ANAEMIA
     Dosage: UNK
     Dates: start: 20171123
  11. METOLAZONE. [Suspect]
     Active Substance: METOLAZONE
     Dosage: 5 MG, UNK
     Route: 048
     Dates: end: 20181213

REACTIONS (2)
  - Condition aggravated [Recovered/Resolved]
  - Hypovolaemia [Recovered/Resolved]

NARRATIVE: CASE EVENT DATE: 20181216
